FAERS Safety Report 25868067 (Version 4)
Quarter: 2025Q4

REPORT INFORMATION
  Report Type: Report from Study
  Country: US (occurrence: US)
  Receive Date: 20251001
  Receipt Date: 20251208
  Transmission Date: 20260117
  Serious: Yes (Hospitalization, Other)
  Sender: ABBVIE
  Company Number: US-ABBVIE-6482059

PATIENT
  Age: 37 Year
  Sex: Female

DRUGS (4)
  1. SKYRIZI [Suspect]
     Active Substance: RISANKIZUMAB-RZAA
     Indication: Crohn^s disease
     Dosage: LAST ADMIN DATE 2025
     Route: 058
     Dates: start: 20250311
  2. SKYRIZI [Suspect]
     Active Substance: RISANKIZUMAB-RZAA
     Dosage: LAST ADMIN DATE 2025
     Route: 058
     Dates: start: 202504
  3. SKYRIZI [Suspect]
     Active Substance: RISANKIZUMAB-RZAA
     Route: 058
     Dates: start: 2025
  4. IRON [Suspect]
     Active Substance: IRON
     Indication: Product used for unknown indication
     Route: 042

REACTIONS (13)
  - Sepsis [Recovering/Resolving]
  - Hypersensitivity [Unknown]
  - Cholelithiasis [Recovering/Resolving]
  - Heart rate increased [Recovering/Resolving]
  - Haemoglobin decreased [Recovering/Resolving]
  - Large intestinal ulcer haemorrhage [Recovering/Resolving]
  - Drug ineffective [Unknown]
  - Large intestine polyp [Unknown]
  - Large intestinal stenosis [Unknown]
  - Cholecystitis infective [Recovering/Resolving]
  - Pain [Unknown]
  - Cholecystitis [Not Recovered/Not Resolved]
  - Psoriasis [Not Recovered/Not Resolved]

NARRATIVE: CASE EVENT DATE: 20250101
